FAERS Safety Report 21771744 (Version 1)
Quarter: 2022Q4

REPORT INFORMATION
  Report Type: Spontaneous
  Country: SE (occurrence: SE)
  Receive Date: 20221223
  Receipt Date: 20221223
  Transmission Date: 20230112
  Serious: Yes (Hospitalization, Other)
  Sender: FDA-Public Use
  Company Number: None

PATIENT

DRUGS (7)
  1. BUPROPION HYDROCHLORIDE [Suspect]
     Active Substance: BUPROPION HYDROCHLORIDE
     Indication: Product used for unknown indication
     Dosage: UNK, 1 TOTAL, UNCLEAR AMOUNT
     Route: 048
     Dates: start: 20210408, end: 20210408
  2. TRIMEPRAZINE [Suspect]
     Active Substance: TRIMEPRAZINE
     Indication: Product used for unknown indication
     Dosage: UNK, 1 TOTAL, UNCLEAR AMOUNT
     Route: 048
     Dates: start: 20210408, end: 20210408
  3. RITALIN [Suspect]
     Active Substance: METHYLPHENIDATE HYDROCHLORIDE
     Indication: Product used for unknown indication
     Dosage: UNK, 1  TOTAL, UNCLEAR AMOUNT
     Route: 048
     Dates: start: 20210408, end: 20210408
  4. ANAFRANIL [Suspect]
     Active Substance: CLOMIPRAMINE HYDROCHLORIDE
     Indication: Product used for unknown indication
     Dosage: UNK,  TOTAL, UNCLEAR AMOUNT
     Route: 048
     Dates: start: 20210408, end: 20210408
  5. BACLOFEN [Suspect]
     Active Substance: BACLOFEN
     Indication: Product used for unknown indication
     Dosage: UNK,  1 TOTAL, UNCLEAR AMOUNT
     Route: 048
     Dates: start: 20210408, end: 20210408
  6. ZOLPIDEM TARTRATE [Suspect]
     Active Substance: ZOLPIDEM TARTRATE
     Indication: Product used for unknown indication
     Dosage: UNK,  1 TOTAL, UNCLEAR AMOUNT
     Route: 048
     Dates: start: 20210408, end: 20210408
  7. LISDEXAMFETAMINE DIMESYLATE [Suspect]
     Active Substance: LISDEXAMFETAMINE DIMESYLATE
     Indication: Product used for unknown indication
     Dosage: UNK, 1 TOTAL, UNCLEAR AMOUNT
     Route: 048
     Dates: start: 20210408, end: 20210408

REACTIONS (2)
  - Intentional overdose [Unknown]
  - Intentional self-injury [Unknown]

NARRATIVE: CASE EVENT DATE: 20210408
